FAERS Safety Report 8058192-1 (Version None)
Quarter: 2012Q1

REPORT INFORMATION
  Report Type: 
  Country: None (occurrence: None)
  Receive Date: 20120112
  Receipt Date: 20111228
  Transmission Date: 20120608
  Serious: Yes (Life-Threatening, Hospitalization, Other)
  Sender: FDA-Public Use
  Company Number: 2011MA018089

PATIENT
  Age: 51 Year
  Sex: Female
  Weight: 67 kg

DRUGS (10)
  1. ACYCLOVIR [Suspect]
     Indication: ENCEPHALITIS POST VARICELLA
     Dosage: 800 MG;X1;IV
     Route: 042
  2. ZIDOVUDINE [Concomitant]
  3. SULFAMETHOXAZOLE [Concomitant]
  4. TRIMETHOPRIM [Concomitant]
  5. VALACYCLOVIR [Suspect]
     Indication: ENCEPHALITIS POST VARICELLA
     Dosage: X1
  6. ATORVASTATIN [Concomitant]
  7. LAMIVUDINE [Concomitant]
  8. AMLODIPINE [Concomitant]
  9. DIDANOSINE [Concomitant]
  10. ATAZANAVIR [Concomitant]

REACTIONS (10)
  - ANAEMIA [None]
  - RESPIRATORY DISTRESS [None]
  - ENCEPHALITIS VIRAL [None]
  - ANGIOEDEMA [None]
  - HYPERSENSITIVITY [None]
  - CONFUSIONAL STATE [None]
  - AGITATION [None]
  - UNRESPONSIVE TO STIMULI [None]
  - BLOOD UREA INCREASED [None]
  - BLOOD CREATININE INCREASED [None]
